FAERS Safety Report 8399840-6 (Version None)
Quarter: 2012Q2

REPORT INFORMATION
  Report Type: 
  Country: None (occurrence: None)
  Receive Date: 20120531
  Receipt Date: 20120529
  Transmission Date: 20120825
  Serious: Yes (Other)
  Sender: FDA-Public Use
  Company Number: US-PFIZER INC-2012129244

PATIENT
  Sex: Male
  Weight: 136 kg

DRUGS (2)
  1. METFORMIN [Concomitant]
     Dosage: UNK
  2. GENOTROPIN [Suspect]
     Indication: PRADER-WILLI SYNDROME
     Dosage: UNK, 1X/DAY
     Route: 058
     Dates: start: 20110101, end: 20110101

REACTIONS (1)
  - SLEEP APNOEA SYNDROME [None]
